FAERS Safety Report 13231585 (Version 1)
Quarter: 2017Q1

REPORT INFORMATION
  Report Type: Spontaneous
  Country: GB (occurrence: GB)
  Receive Date: 20170214
  Receipt Date: 20170214
  Transmission Date: 20170428
  Serious: Yes (Other)
  Sender: FDA-Public Use
  Company Number: GB-NORTH CREEK PHARMACEUTICALS LLC-2017VTS00012

PATIENT
  Age: 80 Year
  Sex: Female

DRUGS (11)
  1. METFORMIN [Concomitant]
     Active Substance: METFORMIN HYDROCHLORIDE
     Indication: KNEE ARTHROPLASTY
  2. ALENODRONIC ACID [Concomitant]
     Indication: KNEE ARTHROPLASTY
  3. MIDAZOLAM [Concomitant]
     Active Substance: MIDAZOLAM HYDROCHLORIDE
     Indication: KNEE ARTHROPLASTY
  4. GLYCOPYRRONIUM [Concomitant]
     Active Substance: GLYCOPYRRONIUM
     Indication: KNEE ARTHROPLASTY
  5. VITAMIN B12 [Concomitant]
     Active Substance: CYANOCOBALAMIN
     Indication: KNEE ARTHROPLASTY
  6. FENTANYL. [Concomitant]
     Active Substance: FENTANYL
     Indication: KNEE ARTHROPLASTY
  7. TRANEXAMIC ACID. [Suspect]
     Active Substance: TRANEXAMIC ACID
     Indication: KNEE ARTHROPLASTY
     Route: 065
  8. KETAMINE [Concomitant]
     Active Substance: KETAMINE
     Indication: KNEE ARTHROPLASTY
  9. PROPOFOL. [Concomitant]
     Active Substance: PROPOFOL
     Indication: KNEE ARTHROPLASTY
  10. RAMIPRIL. [Concomitant]
     Active Substance: RAMIPRIL
     Indication: KNEE ARTHROPLASTY
  11. ONDANSETRON [Concomitant]
     Active Substance: ONDANSETRON
     Indication: KNEE ARTHROPLASTY

REACTIONS (3)
  - Hypotension [None]
  - Tachycardia [None]
  - Anaphylactic reaction [Recovered/Resolved]
